FAERS Safety Report 6196414-2 (Version None)
Quarter: 2009Q2

REPORT INFORMATION
  Report Type: 
  Country: None (occurrence: None)
  Receive Date: 20090518
  Receipt Date: 20090518
  Transmission Date: 20091009
  Serious: Yes (Other)
  Sender: FDA-Public Use
  Company Number: None

PATIENT
  Age: 32 Year
  Sex: Female
  Weight: 88.4514 kg

DRUGS (1)
  1. SINGULAIR [Suspect]
     Indication: RHINITIS ALLERGIC
     Dosage: 1 TABLET EVERY DAY PO
     Route: 048
     Dates: start: 20090404, end: 20090512

REACTIONS (5)
  - ABDOMINAL DISTENSION [None]
  - AMENORRHOEA [None]
  - FLATULENCE [None]
  - URINARY TRACT INFECTION [None]
  - WEIGHT INCREASED [None]
